FAERS Safety Report 19519534 (Version 1)
Quarter: 2021Q3

REPORT INFORMATION
  Report Type: Spontaneous
  Country: US (occurrence: US)
  Receive Date: 20210710
  Receipt Date: 20210710
  Transmission Date: 20211014
  Serious: Yes (Hospitalization)
  Sender: FDA-Public Use
  Company Number: None

PATIENT
  Age: 78 Year
  Sex: Male
  Weight: 97.6 kg

DRUGS (1)
  1. ERBITUX [Suspect]
     Active Substance: CETUXIMAB
     Dates: end: 20210604

REACTIONS (7)
  - Thrombosis [None]
  - Acute kidney injury [None]
  - Pneumonia serratia [None]
  - Septic shock [None]
  - Hypovolaemic shock [None]
  - Delirium [None]
  - Acute respiratory failure [None]

NARRATIVE: CASE EVENT DATE: 20210618
